FAERS Safety Report 13023124 (Version 1)
Quarter: 2016Q4

REPORT INFORMATION
  Report Type: Spontaneous
  Country: US (occurrence: US)
  Receive Date: 20161213
  Receipt Date: 20161213
  Transmission Date: 20170207
  Serious: Yes (Other)
  Sender: FDA-Public Use
  Company Number: US-TEVA-677509USA

PATIENT
  Sex: Female
  Weight: 79.45 kg

DRUGS (1)
  1. AZITHROMYCIN ANHYDROUS. [Suspect]
     Active Substance: AZITHROMYCIN ANHYDROUS
     Indication: SINUSITIS
     Dates: start: 20160706, end: 201607

REACTIONS (4)
  - Wrong technique in product usage process [Unknown]
  - Dysphonia [Unknown]
  - Cough [Unknown]
  - Throat tightness [Recovered/Resolved]
